FAERS Safety Report 9175257 (Version 2)
Quarter: 2013Q2

REPORT INFORMATION
  Report Type: Spontaneous
  Country: JP (occurrence: JP)
  Receive Date: 20130320
  Receipt Date: 20130430
  Transmission Date: 20140414
  Serious: No
  Sender: FDA-Public Use
  Company Number: JP-PFIZER INC-2013086917

PATIENT
  Age: 68 Year
  Sex: Male

DRUGS (3)
  1. LORATADINE PFIZER [Suspect]
     Indication: SEASONAL ALLERGY
     Dosage: 10 MG, DAILY
     Route: 048
     Dates: start: 20130309, end: 20130309
  2. NASONEX [Concomitant]
     Indication: SEASONAL ALLERGY
     Dosage: 2 SPRAYS
     Route: 045
     Dates: start: 20130309
  3. PATANOL [Concomitant]
     Indication: SEASONAL ALLERGY
     Dosage: UNK
     Route: 047
     Dates: start: 20130309

REACTIONS (1)
  - Dyspnoea [Recovered/Resolved]
